FAERS Safety Report 7916707-5 (Version None)
Quarter: 2011Q4

REPORT INFORMATION
  Report Type: 
  Country: None (occurrence: None)
  Receive Date: 20111101
  Receipt Date: 20111019
  Transmission Date: 20120403
  Serious: Yes (Hospitalization)
  Sender: FDA-Public Use
  Company Number: 2011PROUSA00677

PATIENT
  Age: 65 Year
  Sex: Male
  Weight: 91.2 kg

DRUGS (7)
  1. PROVENGE [Suspect]
     Indication: PROSTATE CANCER METASTATIC
     Dosage: 250 ML, SINGLE, INTRAVENOUS, 250 ML, SINGLE, INTRAVENOUS, 250 ML, SINGLE, INTRAVENOUS
     Route: 042
     Dates: start: 20111003, end: 20111003
  2. PROVENGE [Suspect]
     Indication: PROSTATE CANCER METASTATIC
     Dosage: 250 ML, SINGLE, INTRAVENOUS, 250 ML, SINGLE, INTRAVENOUS, 250 ML, SINGLE, INTRAVENOUS
     Route: 042
     Dates: start: 20110919, end: 20110919
  3. PROVENGE [Suspect]
     Indication: PROSTATE CANCER METASTATIC
     Dosage: 250 ML, SINGLE, INTRAVENOUS, 250 ML, SINGLE, INTRAVENOUS, 250 ML, SINGLE, INTRAVENOUS
     Route: 042
     Dates: start: 20111017, end: 20111017
  4. PROVENGE [Suspect]
  5. SEROQUEL [Concomitant]
  6. MORPHINE [Concomitant]
  7. PROVENGE [Suspect]

REACTIONS (12)
  - NAUSEA [None]
  - ARTHRALGIA [None]
  - CRYING [None]
  - CONSTIPATION [None]
  - RESTLESSNESS [None]
  - DISORIENTATION [None]
  - EMOTIONAL DISORDER [None]
  - WEIGHT DECREASED [None]
  - DEHYDRATION [None]
  - ANXIETY [None]
  - PAIN [None]
  - PYREXIA [None]
